FAERS Safety Report 16887393 (Version 1)
Quarter: 2019Q4

REPORT INFORMATION
  Report Type: Spontaneous
  Country: DE (occurrence: DE)
  Receive Date: 20191004
  Receipt Date: 20191004
  Transmission Date: 20200122
  Serious: Yes (Other)
  Sender: FDA-Public Use
  Company Number: DE-AMGEN-DEUSP2019161263

PATIENT
  Age: 68 Year
  Sex: Female

DRUGS (1)
  1. PROLIA [Suspect]
     Active Substance: DENOSUMAB
     Indication: OSTEOPOROSIS POSTMENOPAUSAL
     Dosage: UNK
     Route: 065

REACTIONS (5)
  - Osteonecrosis of jaw [Not Recovered/Not Resolved]
  - Osteomyelitis bacterial [Unknown]
  - Osteomyelitis fungal [Unknown]
  - Peri-implantitis [Unknown]
  - Periodontitis [Unknown]

NARRATIVE: CASE EVENT DATE: 2019
